FAERS Safety Report 13355713 (Version 1)
Quarter: 2017Q1

REPORT INFORMATION
  Report Type: Spontaneous
  Country: US (occurrence: US)
  Receive Date: 20170321
  Receipt Date: 20170321
  Transmission Date: 20170429
  Serious: Yes (Disabling)
  Sender: FDA-Public Use
  Company Number: US-009507513-1703USA008204

PATIENT
  Age: 91 Year
  Sex: Female
  Weight: 74.83 kg

DRUGS (14)
  1. BIOTIN [Concomitant]
     Active Substance: BIOTIN
  2. DR DAVID WILLIAMS JOINT ADVANTAGE GOLD [Concomitant]
  3. ALOE VERA [Concomitant]
     Active Substance: ALOE VERA LEAF
     Route: 048
  4. CALCIUM MAGNESIUM ZINC [Concomitant]
     Active Substance: CALCIUM\MAGNESIUM\ZINC
  5. PENICILLIN V [Concomitant]
     Active Substance: PENICILLIN V
  6. LISINOPRIL. [Concomitant]
     Active Substance: LISINOPRIL
     Route: 048
  7. POTASSIUM CHLORIDE. [Concomitant]
     Active Substance: POTASSIUM CHLORIDE
  8. NATURE MADE MULTI COMPLETE WITH IRON [Concomitant]
  9. AGGRENOX [Concomitant]
     Active Substance: ASPIRIN\DIPYRIDAMOLE
  10. OMEGA-3 MARINE TRIGLYCERIDES [Concomitant]
     Active Substance: FISH OIL
  11. JANUVIA [Suspect]
     Active Substance: SITAGLIPTIN PHOSPHATE
     Indication: BLOOD GLUCOSE INCREASED
     Dosage: 1 TABLET IN THE MORNING TAKEN BY MOUTH
     Route: 048
     Dates: start: 20160323, end: 20160725
  12. SYNTHROID [Concomitant]
     Active Substance: LEVOTHYROXINE SODIUM
  13. OSTEO-BI-FLEX ADVANCED TRIPLE STRENGTH [Concomitant]
  14. CALCIUM (UNSPECIFIED) (+) VITAMIN D (UNSPECIFIED) [Concomitant]
     Active Substance: CALCIUM CARBONATE\VITAMIN D

REACTIONS (8)
  - Skin disorder [Not Recovered/Not Resolved]
  - Impaired driving ability [Not Recovered/Not Resolved]
  - Dermatitis allergic [Not Recovered/Not Resolved]
  - Arthralgia [Not Recovered/Not Resolved]
  - Skin ulcer [Not Recovered/Not Resolved]
  - Peripheral swelling [Not Recovered/Not Resolved]
  - Quality of life decreased [Not Recovered/Not Resolved]
  - Erythema [Not Recovered/Not Resolved]

NARRATIVE: CASE EVENT DATE: 20160727
